FAERS Safety Report 9863955 (Version 1)
Quarter: 2014Q1

REPORT INFORMATION
  Report Type: Spontaneous
  Country: BR (occurrence: BR)
  Receive Date: 20140203
  Receipt Date: 20140203
  Transmission Date: 20141002
  Serious: Yes (Other)
  Sender: FDA-Public Use
  Company Number: PHHY2014BR012318

PATIENT
  Sex: 0

DRUGS (2)
  1. DICLOFENAC [Suspect]
     Dosage: UNK UKN, UNK
  2. TRAMAL [Suspect]
     Dosage: UNK UKN, UNK

REACTIONS (2)
  - Herpes virus infection [Unknown]
  - Hypersensitivity [Unknown]
